FAERS Safety Report 20679100 (Version 2)
Quarter: 2022Q2

REPORT INFORMATION
  Report Type: Report from Study
  Country: US (occurrence: US)
  Receive Date: 20220406
  Receipt Date: 20220622
  Transmission Date: 20220721
  Serious: Yes (Hospitalization, Other)
  Sender: FDA-Public Use
  Company Number: US-BRISTOL-MYERS SQUIBB COMPANY-2022-011801

PATIENT
  Sex: Male
  Weight: 79.4 kg

DRUGS (86)
  1. LOSARTAN [Concomitant]
     Active Substance: LOSARTAN
     Indication: Hypertension
     Dosage: 100 MILLIGRAM
     Route: 048
     Dates: start: 2008, end: 20200616
  2. LOSARTAN [Concomitant]
     Active Substance: LOSARTAN
     Dosage: 20 MILLIGRAM
     Route: 048
     Dates: start: 20200617, end: 20200617
  3. LOSARTAN [Concomitant]
     Active Substance: LOSARTAN
     Dosage: 50 MILLIGRAM
     Route: 048
     Dates: start: 20200617, end: 20200618
  4. LOSARTAN [Concomitant]
     Active Substance: LOSARTAN
     Dosage: 100 MILLIGRAM
     Route: 048
     Dates: start: 20200619, end: 20200629
  5. LOSARTAN [Concomitant]
     Active Substance: LOSARTAN
     Dosage: 25 MILLIGRAM
     Route: 048
     Dates: start: 20200630, end: 20200704
  6. LOSARTAN [Concomitant]
     Active Substance: LOSARTAN
     Dosage: 50MILLIGRAM
     Route: 048
     Dates: start: 20200723
  7. ASPIRIN [Concomitant]
     Active Substance: ASPIRIN
     Indication: Arthritis
     Dosage: 81 MILLIGRAM
     Route: 048
     Dates: start: 2008, end: 20210720
  8. ASPIRIN [Concomitant]
     Active Substance: ASPIRIN
     Indication: Anticoagulant therapy
     Dosage: 325 MILLIGRAM
     Route: 048
     Dates: start: 20210805, end: 20210805
  9. ASPIRIN [Concomitant]
     Active Substance: ASPIRIN
     Dosage: 81 MILLIGRAM
     Route: 048
     Dates: start: 20210806, end: 20210806
  10. INVOKANA [Concomitant]
     Active Substance: CANAGLIFLOZIN
     Indication: Type 2 diabetes mellitus
     Dosage: 300 MILLIGRAM
     Route: 048
     Dates: start: 2015, end: 20200114
  11. ACETAMINOPHEN [Concomitant]
     Active Substance: ACETAMINOPHEN
     Indication: Arthritis
     Dosage: FREQUENCY TEXT: AS NEEDED
     Route: 048
     Dates: start: 2008
  12. ACETAMINOPHEN [Concomitant]
     Active Substance: ACETAMINOPHEN
     Indication: Pain
     Dosage: FREQUENCY TEXT: EVERY 6 HOURS
     Route: 048
     Dates: start: 20200604, end: 20200612
  13. ACETAMINOPHEN [Concomitant]
     Active Substance: ACETAMINOPHEN
     Indication: Pain in extremity
     Dosage: 2925 MILLIGRAM
     Route: 048
     Dates: start: 20200626, end: 20200629
  14. ACETAMINOPHEN [Concomitant]
     Active Substance: ACETAMINOPHEN
     Indication: Pain
     Dosage: FREQUENCY TEXT: AS NEEDED
     Route: 048
     Dates: start: 20200624, end: 20200707
  15. VICTOZA [Concomitant]
     Active Substance: LIRAGLUTIDE
     Indication: Type 2 diabetes mellitus
     Dosage: DAILY DOSE : 1.8 OUNCE?UNIT DOSE : 1.8 OUNCE?1.8 MILLIGRAM
     Route: 058
     Dates: start: 2017, end: 20200114
  16. OXYCODONE [Concomitant]
     Active Substance: OXYCODONE
     Indication: Arthralgia
     Dosage: FREQUENCY TEXT: AS NEEDED?5-3.25 MILLIGRAM
     Route: 048
     Dates: start: 20181019
  17. OXYCODONE [Concomitant]
     Active Substance: OXYCODONE
     Indication: Pain in extremity
     Dosage: FREQUENCY TEXT: AS NEEDED?10MG
     Route: 048
     Dates: start: 20200604, end: 20200622
  18. OXYCODONE [Concomitant]
     Active Substance: OXYCODONE
     Dosage: FREQUENCY TEXT: AS NEEDED?10MG
     Route: 048
     Dates: start: 20200629, end: 20200629
  19. OXYCODONE [Concomitant]
     Active Substance: OXYCODONE
     Dosage: FREQUENCY TEXT: AS NEEDED?5MG
     Route: 048
     Dates: start: 20200604, end: 20200707
  20. COLCHICINE [Concomitant]
     Active Substance: COLCHICINE
     Indication: Gout
     Dosage: 1.2 MILLIGRAM
     Route: 048
     Dates: start: 20200403, end: 20200413
  21. COLCHICINE [Concomitant]
     Active Substance: COLCHICINE
     Indication: Cellulitis
  22. FARXIGA [Concomitant]
     Active Substance: DAPAGLIFLOZIN PROPANEDIOL
     Indication: Diabetes mellitus
     Dosage: 10 MILLIGRAM
     Route: 048
     Dates: start: 20200114
  23. NOVOLOG [Concomitant]
     Active Substance: INSULIN ASPART
     Indication: Diabetes mellitus
     Dosage: 1
     Route: 030
     Dates: start: 201909
  24. OZEMPIC [Concomitant]
     Active Substance: SEMAGLUTIDE
     Indication: Diabetes mellitus
     Dosage: .0357 MILLIGRAM
     Route: 030
     Dates: start: 20200114
  25. CEPHALEXIN [Concomitant]
     Active Substance: CEPHALEXIN
     Indication: Localised infection
     Dosage: 500 MILLIGRAM
     Route: 048
     Dates: start: 20200413
  26. ATORVASTATIN [Concomitant]
     Active Substance: ATORVASTATIN
     Indication: Hyperlipidaemia
     Dosage: 40 MILLIGRAM
     Route: 048
     Dates: start: 202003, end: 202006
  27. ATORVASTATIN [Concomitant]
     Active Substance: ATORVASTATIN
     Dosage: 40 MILLIGRAM
     Route: 048
     Dates: start: 20210805
  28. CLOPIDOGREL [Concomitant]
     Active Substance: CLOPIDOGREL BISULFATE
     Indication: Thrombosis prophylaxis
     Dosage: FREQUENCY TEXT: AS NEEDED
     Route: 048
     Dates: start: 20200610
  29. CLOPIDOGREL [Concomitant]
     Active Substance: CLOPIDOGREL BISULFATE
     Indication: Ischaemia
  30. PANTOPRAZOLE [Concomitant]
     Active Substance: PANTOPRAZOLE
     Indication: Gastric ulcer
     Dosage: 40 MILLIGRAM
     Route: 048
     Dates: start: 20200616, end: 20201205
  31. PANTOPRAZOLE [Concomitant]
     Active Substance: PANTOPRAZOLE
     Dosage: 40 MILLIGRAM
     Route: 042
     Dates: start: 20201206, end: 20201208
  32. PANTOPRAZOLE [Concomitant]
     Active Substance: PANTOPRAZOLE
     Dosage: 40 MILLIGRAM
     Route: 048
     Dates: start: 20201208
  33. ROSUVASTATIN [Concomitant]
     Active Substance: ROSUVASTATIN
     Indication: Hyperlipidaemia
     Dosage: 10 MILLIGRAM
     Route: 048
     Dates: start: 202010, end: 202102
  34. LIDOCAINE [Concomitant]
     Active Substance: LIDOCAINE
     Indication: Arthralgia
     Dosage: FREQUENCY TEXT: PRN?PATCH
     Route: 061
     Dates: start: 2020
  35. LIDOCAINE [Concomitant]
     Active Substance: LIDOCAINE
     Indication: Maintenance of anaesthesia
     Dosage: FREQUENCY TEXT: PRN?30ML
     Route: 023
     Dates: start: 20200603, end: 20200624
  36. LIDOCAINE [Concomitant]
     Active Substance: LIDOCAINE
     Dosage: FREQUENCY TEXT: PRN?20ML
     Route: 061
     Dates: start: 20200701, end: 20200701
  37. LIDOCAINE [Concomitant]
     Active Substance: LIDOCAINE
     Dosage: FREQUENCY TEXT: PRN?PATCH
     Route: 061
     Dates: start: 20200618, end: 20200707
  38. WARFARIN [Concomitant]
     Active Substance: WARFARIN
     Indication: Thrombosis prophylaxis
     Dosage: .6429 MILLIGRAM
     Route: 048
     Dates: start: 20201119, end: 20201202
  39. WARFARIN [Concomitant]
     Active Substance: WARFARIN
     Indication: Anticoagulant therapy
     Dosage: 1.7143 MILLIGRAM
     Route: 048
     Dates: start: 20201119, end: 20201202
  40. WARFARIN [Concomitant]
     Active Substance: WARFARIN
     Indication: Peripheral vascular disorder
     Dosage: 1.5 MILLIGRAM
     Route: 048
     Dates: start: 20201204, end: 20201204
  41. WARFARIN [Concomitant]
     Active Substance: WARFARIN
     Dosage: 3 MILLIGRAM
     Route: 048
     Dates: start: 20201205, end: 20201206
  42. WARFARIN [Concomitant]
     Active Substance: WARFARIN
     Dosage: 1.5 MILLIGRAM
     Route: 048
     Dates: start: 20201207, end: 20201207
  43. WARFARIN [Concomitant]
     Active Substance: WARFARIN
     Dosage: 3 MILLIGRAM
     Route: 048
     Dates: start: 20201208, end: 20201209
  44. WARFARIN [Concomitant]
     Active Substance: WARFARIN
     Dosage: 3 MILLIGRAM
     Route: 048
     Dates: start: 20201219
  45. WARFARIN [Concomitant]
     Active Substance: WARFARIN
     Dosage: 3 MILLIGRAM
     Route: 048
     Dates: start: 20210806, end: 20210806
  46. WARFARIN [Concomitant]
     Active Substance: WARFARIN
     Dosage: 1.5 MILLIGRAM
     Route: 048
     Dates: start: 20210816
  47. WARFARIN [Concomitant]
     Active Substance: WARFARIN
     Dosage: 3MILLIGRAM
     Route: 048
     Dates: start: 20210816
  48. CYMBALTA [Concomitant]
     Active Substance: DULOXETINE HYDROCHLORIDE
     Indication: Neuralgia
     Dosage: 20 MILLIGRAM
     Route: 048
     Dates: start: 20210412, end: 20210419
  49. CYMBALTA [Concomitant]
     Active Substance: DULOXETINE HYDROCHLORIDE
     Dosage: 40 MILLIGRAM
     Route: 048
     Dates: start: 20210420
  50. FLOMAX [Concomitant]
     Active Substance: TAMSULOSIN HYDROCHLORIDE
     Indication: Dysuria
     Dosage: .4 MILLIGRAM
     Route: 048
     Dates: start: 20210318
  51. ZETIA [Concomitant]
     Active Substance: EZETIMIBE
     Indication: Hyperlipidaemia
     Dosage: 10 MILLIGRAM
     Route: 048
     Dates: start: 20210419
  52. LIPITOR [Concomitant]
     Active Substance: ATORVASTATIN CALCIUM
     Indication: Hyperlipidaemia
     Dosage: 40 MILLIGRAM
     Route: 048
     Dates: start: 20210805
  53. Dialyvite/Zinc [Concomitant]
     Indication: Supplementation therapy
     Route: 048
     Dates: start: 20210806, end: 20210810
  54. ANBESOL REGULAR STRENGTH GEL [Concomitant]
     Active Substance: BENZOCAINE
     Indication: Oral pain
     Dosage: FREQUENCY TEXT: PRN?20 PERCENT
     Route: 061
     Dates: start: 20210806
  55. CIPROFLOXACIN [Concomitant]
     Active Substance: CIPROFLOXACIN
     Indication: Infection prophylaxis
     Dosage: 1000 MILLIGRAM
     Route: 048
     Dates: start: 202105, end: 202105
  56. CIPROFLOXACIN [Concomitant]
     Active Substance: CIPROFLOXACIN
     Dosage: 1000 MILLIGRAM
     Route: 048
     Dates: start: 20210806, end: 20210809
  57. DEXTROSE [Concomitant]
     Active Substance: DEXTROSE
     Indication: Blood glucose decreased
     Dosage: FREQUENCY TEXT: PRN?25 MILLILITER
     Route: 042
     Dates: start: 20210806, end: 20210807
  58. COLACE [Concomitant]
     Active Substance: DOCUSATE SODIUM
     Indication: Faeces hard
     Dosage: FREQUENCY TEXT: PRN
     Route: 048
     Dates: start: 20210728, end: 20210729
  59. COLACE [Concomitant]
     Active Substance: DOCUSATE SODIUM
     Dosage: FREQUENCY TEXT: PRN
     Route: 048
     Dates: start: 20210806
  60. ARIXTRA [Concomitant]
     Active Substance: FONDAPARINUX SODIUM
     Indication: Anticoagulant therapy
     Dosage: 7.5 MILLIGRAM
     Route: 058
     Dates: start: 20210805, end: 20210805
  61. ARIXTRA [Concomitant]
     Active Substance: FONDAPARINUX SODIUM
     Dosage: 2.5 MILLIGRAM
     Route: 058
     Dates: start: 20210731, end: 20210804
  62. ARIXTRA [Concomitant]
     Active Substance: FONDAPARINUX SODIUM
     Dosage: 7.5 MILLIGRAM
     Route: 058
     Dates: start: 20210807, end: 20210813
  63. HUMALOG [Concomitant]
     Active Substance: INSULIN LISPRO
     Indication: Type 2 diabetes mellitus
     Dosage: FREQUENCY TEXT: PRN?6 UNITS
     Route: 058
     Dates: start: 20210806, end: 20210806
  64. MELATONIN [Concomitant]
     Active Substance: MELATONIN
     Indication: Insomnia
     Dosage: FREQUENCY TEXT: PRN
     Route: 048
     Dates: start: 20210805, end: 20210807
  65. SODIUM CHLORIDE [Concomitant]
     Active Substance: SODIUM CHLORIDE
     Indication: Electrolyte imbalance
     Dosage: FREQUENCY TEXT: PRN?10 MILLILITER
     Route: 042
     Dates: start: 20210805, end: 20210807
  66. PREDNISONE [Concomitant]
     Active Substance: PREDNISONE
     Indication: Inflammatory bowel disease
     Dosage: 15 MILLIGRAM
     Route: 048
     Dates: start: 20210808
  67. PREDNISONE [Concomitant]
     Active Substance: PREDNISONE
     Dosage: 2.5 MILLIGRAM
     Route: 058
     Dates: start: 20210731, end: 20210804
  68. PREDNISONE [Concomitant]
     Active Substance: PREDNISONE
     Dosage: 7.5 MILLIGRAM
     Route: 058
     Dates: start: 20210807, end: 20210813
  69. PREDNISONE [Concomitant]
     Active Substance: PREDNISONE
     Dosage: 7.5 MILLIGRAM
     Route: 048
     Dates: start: 20200423
  70. PREDNISONE [Concomitant]
     Active Substance: PREDNISONE
     Dosage: 10 MILLIGRAM
     Route: 048
     Dates: start: 20201221
  71. PREDNISONE [Concomitant]
     Active Substance: PREDNISONE
     Dosage: 10 MILLIGRAM
     Route: 048
     Dates: start: 20210709, end: 20210807
  72. PREDNISONE [Concomitant]
     Active Substance: PREDNISONE
     Dosage: 15 MILLIGRAM
     Route: 048
     Dates: start: 20210808
  73. GABAPENTIN [Concomitant]
     Active Substance: GABAPENTIN
     Indication: Neuralgia
     Dosage: 600 MILLIGRAM
     Route: 048
     Dates: start: 202107
  74. GABAPENTIN [Concomitant]
     Active Substance: GABAPENTIN
     Dosage: 2.5 MILLIGRAM
     Route: 058
     Dates: start: 20210731, end: 20210804
  75. GABAPENTIN [Concomitant]
     Active Substance: GABAPENTIN
     Dosage: 7.5 MILLIGRAM
     Route: 058
     Dates: start: 20210807, end: 20210813
  76. GABAPENTIN [Concomitant]
     Active Substance: GABAPENTIN
     Dosage: 900 MILLIGRAM
     Route: 048
     Dates: start: 20200623
  77. IMODIUM [Concomitant]
     Active Substance: LOPERAMIDE HYDROCHLORIDE
     Indication: Diarrhoea
     Dosage: FREQUENCY TEXT: PRN
     Route: 048
     Dates: start: 202106
  78. IMODIUM [Concomitant]
     Active Substance: LOPERAMIDE HYDROCHLORIDE
     Dosage: 2.5 MILLIGRAM
     Route: 058
     Dates: start: 20210731, end: 20210804
  79. IMODIUM [Concomitant]
     Active Substance: LOPERAMIDE HYDROCHLORIDE
     Dosage: 7.5 MILLIGRAM
     Route: 058
     Dates: start: 20210807, end: 20210813
  80. CEFOXITIN [Concomitant]
     Active Substance: CEFOXITIN SODIUM
     Indication: Prophylaxis
     Dosage: 2G
     Route: 042
     Dates: start: 20210728, end: 20210729
  81. HUMULIN NOS [Concomitant]
     Active Substance: INSULIN HUMAN
     Indication: Type 2 diabetes mellitus
     Dosage: 1
     Route: 058
     Dates: start: 20210728, end: 20210729
  82. LACTATED RINGERS SOLUTION [Concomitant]
     Active Substance: CALCIUM CHLORIDE\POTASSIUM CHLORIDE\SODIUM CHLORIDE\SODIUM LACTATE
     Indication: Fluid replacement
     Dosage: 1000ML
     Route: 042
     Dates: start: 20210728, end: 20210729
  83. MIDAZOLAM [Concomitant]
     Active Substance: MIDAZOLAM
     Indication: Sedative therapy
     Dosage: 2MG
     Route: 042
     Dates: start: 20210728, end: 20210729
  84. SCOPACE [Concomitant]
     Active Substance: SCOPOLAMINE HYDROBROMIDE
     Indication: Procedural nausea
     Dosage: 1MG
     Route: 062
     Dates: start: 20210728, end: 20210729
  85. SENNA [Concomitant]
     Active Substance: SENNA LEAF\SENNOSIDES\SENNOSIDES A AND B
     Indication: Constipation prophylaxis
     Dosage: 2 TABLETS
     Route: 048
     Dates: start: 20210728, end: 20210729
  86. ISOVUE [Concomitant]
     Active Substance: IOPAMIDOL
     Indication: Imaging procedure
     Dosage: 66ML
     Route: 042
     Dates: start: 20210805, end: 20210807

REACTIONS (4)
  - Ischaemic stroke [Recovered/Resolved]
  - Prostate cancer [Recovered/Resolved]
  - Spinal compression fracture [Recovering/Resolving]
  - Sepsis [Recovered/Resolved]

NARRATIVE: CASE EVENT DATE: 20200923
